FAERS Safety Report 10897317 (Version 1)
Quarter: 2015Q1

REPORT INFORMATION
  Report Type: Spontaneous
  Country: US (occurrence: None)
  Receive Date: 20150302
  Receipt Date: 20150302
  Transmission Date: 20150721
  Serious: Yes (Other)
  Sender: FDA-Public Use
  Company Number: None

PATIENT
  Age: 25 Year
  Sex: Female
  Weight: 99.79 kg

DRUGS (1)
  1. DEPO-PROVERA [Suspect]
     Active Substance: MEDROXYPROGESTERONE ACETATE
     Indication: CONTRACEPTION
     Dosage: 1 INJECTION 4 TIMES/YEAR ONCE EVERY 3 MONTH  GIVEN INTO/UNDER THE SKIN
     Dates: start: 2004, end: 2007

REACTIONS (2)
  - Infertility female [None]
  - Progesterone decreased [None]
